FAERS Safety Report 9225316 (Version 1)
Quarter: 2013Q2

REPORT INFORMATION
  Report Type: Spontaneous
  Country: US (occurrence: None)
  Receive Date: 20130410
  Receipt Date: 20130410
  Transmission Date: 20140414
  Serious: Yes (Other)
  Sender: FDA-Public Use
  Company Number: None

PATIENT
  Age: 48 Year
  Sex: Female
  Weight: 69.7 kg

DRUGS (1)
  1. ALDESLEUKIN [Suspect]
     Dosage: MILLION UN   IV
     Route: 042

REACTIONS (5)
  - Atrial fibrillation [None]
  - Throat tightness [None]
  - Muscle tightness [None]
  - Discomfort [None]
  - Hypotension [None]
